FAERS Safety Report 24551087 (Version 2)
Quarter: 2024Q4

REPORT INFORMATION
  Report Type: Report from Study
  Country: CA (occurrence: CA)
  Receive Date: 20241025
  Receipt Date: 20241107
  Transmission Date: 20250115
  Serious: Yes (Other)
  Sender: BAUSCH AND LOMB
  Company Number: CA-BAUSCH-BL-2024-015721

PATIENT
  Age: 35 Year
  Sex: Male
  Weight: 96 kg

DRUGS (2)
  1. SILIQ [Suspect]
     Active Substance: BRODALUMAB
     Indication: Psoriasis
     Dosage: 210 MILLIGRAM/1.5 MILLILITER, WEEKLY (WEEK 0, 1, 2)
     Route: 058
     Dates: start: 20230214, end: 202303
  2. SILIQ [Suspect]
     Active Substance: BRODALUMAB
     Dosage: 210 MILLIGRAM/1.5 MILLILITER, WEEKLY (Q2 WEEKS)
     Route: 058
     Dates: start: 202303

REACTIONS (3)
  - Psoriatic arthropathy [Unknown]
  - Psoriasis [Recovering/Resolving]
  - Joint swelling [Unknown]
